FAERS Safety Report 8244840-X (Version None)
Quarter: 2012Q1

REPORT INFORMATION
  Report Type: 
  Country: None (occurrence: None)
  Receive Date: 20120329
  Receipt Date: 20110606
  Transmission Date: 20120608
  Serious: No
  Sender: FDA-Public Use
  Company Number: US-MYLANLABS-2011S1011733

PATIENT
  Age: 56 Year
  Sex: Female

DRUGS (7)
  1. FENTANYL-100 [Suspect]
     Indication: PAIN
     Dosage: PRN
     Route: 062
     Dates: start: 20100101, end: 20100101
  2. AMBIEN CR [Concomitant]
     Indication: INSOMNIA
     Route: 048
  3. FENTANYL-100 [Suspect]
     Dosage: PRN
     Route: 062
     Dates: start: 20110101
  4. FENTANYL-100 [Suspect]
     Indication: INSOMNIA
     Dosage: PRN
     Route: 062
     Dates: start: 20100101, end: 20100101
  5. FENTANYL-100 [Suspect]
     Dosage: PRN
     Route: 062
     Dates: start: 20110101
  6. FLEXERIL [Concomitant]
     Indication: MULTIPLE SCLEROSIS
     Dosage: STRENGTH UNKNOWN
     Route: 048
  7. NEURONTIN [Concomitant]
     Indication: MULTIPLE SCLEROSIS
     Route: 048

REACTIONS (5)
  - DRUG INEFFECTIVE FOR UNAPPROVED INDICATION [None]
  - DRUG EFFECT DECREASED [None]
  - INCORRECT DRUG ADMINISTRATION DURATION [None]
  - PAIN [None]
  - INSOMNIA [None]
